FAERS Safety Report 6790389-0 (Version None)
Quarter: 2010Q2

REPORT INFORMATION
  Report Type: 
  Country: None (occurrence: None)
  Receive Date: 20100624
  Receipt Date: 20100615
  Transmission Date: 20101027
  Serious: Yes (Other)
  Sender: FDA-Public Use
  Company Number: PHBS2008BR01253

PATIENT
  Age: 31 Year
  Sex: Female

DRUGS (1)
  1. METHERGINE [Suspect]
     Indication: ABORTION INDUCED
     Dosage: 6 DF, BID
     Route: 048
     Dates: start: 20080123, end: 20080123

REACTIONS (3)
  - ABDOMINAL PAIN [None]
  - DRUG EXPOSURE DURING PREGNANCY [None]
  - UTERINE HAEMORRHAGE [None]
